FAERS Safety Report 9413069 (Version 1)
Quarter: 2013Q3

REPORT INFORMATION
  Report Type: Spontaneous
  Country: US (occurrence: US)
  Receive Date: 20130722
  Receipt Date: 20130722
  Transmission Date: 20140515
  Serious: No
  Sender: FDA-Public Use
  Company Number: US-TEVA-420323USA

PATIENT
  Sex: Female
  Weight: 53.12 kg

DRUGS (1)
  1. PARAGARD 380A [Suspect]
     Indication: CONTRACEPTION
     Route: 015
     Dates: start: 20130426, end: 20130715

REACTIONS (3)
  - Menorrhagia [Unknown]
  - Sensation of pressure [Recovered/Resolved]
  - Device expulsion [Recovered/Resolved]
